FAERS Safety Report 8311228-2 (Version None)
Quarter: 2012Q2

REPORT INFORMATION
  Report Type: 
  Country: None (occurrence: None)
  Receive Date: 20120425
  Receipt Date: 20120419
  Transmission Date: 20120825
  Serious: Yes (Hospitalization, Disabling)
  Sender: FDA-Public Use
  Company Number: US-GLAXOSMITHKLINE-A0699122A

PATIENT
  Age: 45 Year
  Sex: Male
  Weight: 136.4 kg

DRUGS (3)
  1. AMIODARONE HCL [Concomitant]
  2. AVANDAMET [Suspect]
     Indication: TYPE 2 DIABETES MELLITUS
     Dosage: 2MG TWICE PER DAY
     Route: 048
     Dates: start: 20021001, end: 20060101
  3. AVANDIA [Suspect]
     Indication: TYPE 2 DIABETES MELLITUS
     Dosage: 2MG TWICE PER DAY
     Route: 048
     Dates: start: 20030801, end: 20080701

REACTIONS (8)
  - ANXIETY [None]
  - INJURY [None]
  - MYOCARDIAL INFARCTION [None]
  - FLUID OVERLOAD [None]
  - DEFORMITY [None]
  - CARDIAC FAILURE CONGESTIVE [None]
  - ATRIAL FIBRILLATION [None]
  - FLUID RETENTION [None]
